FAERS Safety Report 24132861 (Version 1)
Quarter: 2024Q3

REPORT INFORMATION
  Report Type: Spontaneous
  Country: US (occurrence: None)
  Receive Date: 20240723
  Receipt Date: 20240723
  Transmission Date: 20241017
  Serious: Yes (Hospitalization)
  Sender: Public
  Company Number: None

PATIENT
  Age: 50 Year
  Sex: Female

DRUGS (1)
  1. OCTAGAM IMMUNE GLOBULIN (HUMAN) [Suspect]
     Active Substance: HUMAN IMMUNOGLOBULIN G
     Indication: Hypogammaglobulinaemia
     Dosage: 40GM EVERY 3 WEEKS IV?
     Route: 042
     Dates: start: 202304

REACTIONS (2)
  - Malaise [None]
  - Pneumonia bacterial [None]

NARRATIVE: CASE EVENT DATE: 20240708
